FAERS Safety Report 8566238-7 (Version None)
Quarter: 2012Q3

REPORT INFORMATION
  Report Type: 
  Country: None (occurrence: None)
  Receive Date: 20120803
  Receipt Date: 20111125
  Transmission Date: 20120928
  Serious: No
  Sender: FDA-Public Use
  Company Number: US-ABBOTT-11P-163-0878888-00

PATIENT
  Sex: Male
  Weight: 95.34 kg

DRUGS (9)
  1. NIASPAN [Suspect]
     Indication: ARTERIAL OCCLUSIVE DISEASE
  2. IBUPROFEN [Concomitant]
     Indication: PROPHYLAXIS
     Dosage: STOPPED MEDICATION FOR 2 WEEKS. 20-30 MINUTES BEFORE NIASPAN THERAPY
     Route: 048
     Dates: start: 20111101
  3. METFORMIN HYDROCHLORIDE [Concomitant]
     Indication: PRODUCT USED FOR UNKNOWN INDICATION
  4. NIASPAN [Suspect]
     Indication: BLOOD CHOLESTEROL INCREASED
     Dosage: AT HOUR OF SLEEP. 3 MONTH SUPPLY FROM MAIL ORDER
     Route: 048
     Dates: start: 20101101
  5. ASPIRIN [Concomitant]
     Indication: PRODUCT USED FOR UNKNOWN INDICATION
     Dosage: TAKES DURING DINNER IN EVENING
     Route: 048
  6. AMLODIPINE [Concomitant]
     Indication: PRODUCT USED FOR UNKNOWN INDICATION
  7. IBUPROFEN [Concomitant]
     Dosage: 20-30 MINUTES BEFORE NIASPAN THERAPY
     Route: 048
  8. LIPITOR [Concomitant]
     Indication: PRODUCT USED FOR UNKNOWN INDICATION
  9. BENAZEPRIL HYDROCHLORIDE [Concomitant]
     Indication: PRODUCT USED FOR UNKNOWN INDICATION

REACTIONS (3)
  - PARAESTHESIA [None]
  - FLUSHING [None]
  - PRURITUS [None]
